FAERS Safety Report 7450699-0 (Version None)
Quarter: 2011Q2

REPORT INFORMATION
  Report Type: 
  Country: None (occurrence: None)
  Receive Date: 20110502
  Receipt Date: 20110407
  Transmission Date: 20111010
  Serious: Yes (Death, Hospitalization)
  Sender: FDA-Public Use
  Company Number: US-BAXTER-2011BH008073

PATIENT
  Sex: Male

DRUGS (1)
  1. DIANEAL [Suspect]
     Indication: PERITONEAL DIALYSIS
     Route: 033
     Dates: start: 20090501, end: 20110301

REACTIONS (4)
  - CLOSTRIDIUM DIFFICILE COLITIS [None]
  - TERMINAL STATE [None]
  - CARDIAC FAILURE CONGESTIVE [None]
  - DYSURIA [None]
